FAERS Safety Report 19781973 (Version 1)
Quarter: 2021Q3

REPORT INFORMATION
  Report Type: Spontaneous
  Country: US (occurrence: US)
  Receive Date: 20210902
  Receipt Date: 20210902
  Transmission Date: 20211014
  Serious: No
  Sender: FDA-Public Use
  Company Number: US-ENDO PHARMACEUTICALS INC-2021-008395

PATIENT

DRUGS (4)
  1. XELJANZ XR [Concomitant]
     Active Substance: TOFACITINIB CITRATE
     Indication: PSORIATIC ARTHROPATHY
  2. PREDNISONE. [Suspect]
     Active Substance: PREDNISONE
     Dosage: 15 MG, DAILY
     Route: 065
     Dates: start: 202103
  3. PREDNISONE. [Suspect]
     Active Substance: PREDNISONE
     Indication: PRODUCT USED FOR UNKNOWN INDICATION
     Dosage: UNK UNKNOWN, UNKNOWN
     Route: 065
     Dates: start: 2019
  4. PREDNISONE. [Suspect]
     Active Substance: PREDNISONE
     Dosage: 20 MG, DAILY
     Route: 065

REACTIONS (2)
  - Skin atrophy [Unknown]
  - Increased tendency to bruise [Unknown]
